FAERS Safety Report 9243196 (Version 1)
Quarter: 2013Q2

REPORT INFORMATION
  Report Type: Spontaneous
  Country: NO (occurrence: NO)
  Receive Date: 20130419
  Receipt Date: 20130419
  Transmission Date: 20140414
  Serious: Yes (Other)
  Sender: FDA-Public Use
  Company Number: NO-BAXTER-2013BAX014232

PATIENT
  Age: 2 Year
  Sex: Female

DRUGS (1)
  1. KIOVIG 100 MG/ML INFUSJONSV?SKE, OPPL?SNING [Suspect]
     Indication: GUILLAIN-BARRE SYNDROME
     Route: 042
     Dates: start: 20130325, end: 20130325

REACTIONS (3)
  - Lethargy [Recovered/Resolved]
  - Depressed level of consciousness [Unknown]
  - Coma scale abnormal [Recovered/Resolved]
